FAERS Safety Report 7214992-9 (Version None)
Quarter: 2011Q1

REPORT INFORMATION
  Report Type: 
  Country: None (occurrence: None)
  Receive Date: 20110107
  Receipt Date: 20100629
  Transmission Date: 20110831
  Serious: No
  Sender: FDA-Public Use
  Company Number: A0867658A

PATIENT
  Age: 57 Year
  Sex: Female

DRUGS (4)
  1. LEXAPRO [Concomitant]
  2. LOVAZA [Suspect]
     Dosage: 2CAP TWICE PER DAY
     Route: 048
     Dates: start: 20050101
  3. CRESTOR [Concomitant]
  4. ALLOPURINOL [Concomitant]

REACTIONS (1)
  - GOUT [None]
